FAERS Safety Report 15229286 (Version 3)
Quarter: 2018Q3

REPORT INFORMATION
  Report Type: Spontaneous
  Country: US (occurrence: US)
  Receive Date: 20180801
  Receipt Date: 20180912
  Transmission Date: 20181010
  Serious: No
  Sender: FDA-Public Use
  Company Number: US-BIOGEN-2018BI00616005

PATIENT
  Sex: Female

DRUGS (1)
  1. AVONEX [Suspect]
     Active Substance: INTERFERON BETA-1A
     Indication: MULTIPLE SCLEROSIS
     Dosage: INJECT 30 MCG?INTRAMUSCULARLY?ONCE WEEKLY
     Route: 030
     Dates: start: 20050429

REACTIONS (5)
  - Bone density abnormal [Unknown]
  - Visual impairment [Unknown]
  - Blepharospasm [Unknown]
  - Malaise [Unknown]
  - Headache [Unknown]
